FAERS Safety Report 5523988-4 (Version None)
Quarter: 2007Q4

REPORT INFORMATION
  Report Type: 
  Country: None (occurrence: None)
  Receive Date: 20071121
  Receipt Date: 20071120
  Transmission Date: 20080405
  Serious: Yes (Other)
  Sender: FDA-Public Use
  Company Number: US-SHR-US-2007-014679

PATIENT
  Age: 57 Year
  Sex: Female

DRUGS (5)
  1. BETASERON [Suspect]
     Dosage: 2 MIU, EVERY 2D
     Route: 058
     Dates: start: 20070327, end: 20070401
  2. BETASERON [Suspect]
     Dosage: 4 MIU, EVERY 2D
     Route: 058
     Dates: start: 20070401
  3. ALEVE [Concomitant]
     Dosage: UNK, UNK
  4. DARVOCET [Concomitant]
  5. MEDROL [Concomitant]
     Indication: PREMEDICATION
     Dosage: 4 MG, UNK
     Route: 048

REACTIONS (4)
  - DRY MOUTH [None]
  - GENERALISED OEDEMA [None]
  - MYALGIA [None]
  - SWELLING FACE [None]
